FAERS Safety Report 14346929 (Version 2)
Quarter: 2018Q2

REPORT INFORMATION
  Report Type: Spontaneous
  Country: IN (occurrence: IN)
  Receive Date: 20180103
  Receipt Date: 20180402
  Transmission Date: 20180711
  Serious: Yes (Other)
  Sender: FDA-Public Use
  Company Number: IN-PFIZER INC-2017551690

PATIENT
  Age: 42 Year
  Sex: Male

DRUGS (5)
  1. TELMISARTAN. [Concomitant]
     Active Substance: TELMISARTAN
     Indication: HYPERTENSION
     Dosage: UNK (SINCE LAST 3 YEARS)
  2. PREGABALIN. [Suspect]
     Active Substance: PREGABALIN
     Dosage: INCREASING THE DOSE TO REACH UP 1500-2000 MG OF PREGABALIN EVERY DAY IN FEW MONTHS
  3. PREGABALIN. [Suspect]
     Active Substance: PREGABALIN
     Dosage: 75 MG, ALTERNATE DAY
  4. PREGABALIN. [Suspect]
     Active Substance: PREGABALIN
     Indication: PAIN
     Dosage: 75 MG, 3X/DAY (THRICE DAILY ABOUT 8 MONTHS BACK)
  5. PREGABALIN. [Suspect]
     Active Substance: PREGABALIN
     Dosage: 20 DF, DAILY (20 CAPSULES/DAY (1500MG)

REACTIONS (11)
  - Drug ineffective [Unknown]
  - Euphoric mood [Unknown]
  - Drug abuse [Unknown]
  - Tremor [Unknown]
  - Condition aggravated [Unknown]
  - Chest discomfort [Unknown]
  - Drug dependence [Unknown]
  - Feeling abnormal [Unknown]
  - Nausea [Unknown]
  - Depression [Unknown]
  - Irritability [Unknown]
